FAERS Safety Report 7440181-9 (Version None)
Quarter: 2011Q2

REPORT INFORMATION
  Report Type: 
  Country: None (occurrence: None)
  Receive Date: 20110427
  Receipt Date: 20110117
  Transmission Date: 20111010
  Serious: No
  Sender: FDA-Public Use
  Company Number: US-AMGEN-USASP2011001009

PATIENT
  Age: 75 Year
  Sex: Female
  Weight: 89.796 kg

DRUGS (15)
  1. ASPIRIN [Concomitant]
     Dosage: 81 MG, QD
  2. OMEPRAZOLE [Concomitant]
     Dosage: 20 MG, QD
  3. FISH OIL [Concomitant]
     Dosage: 1000 MG, TID
  4. TRIAMTERENE [Concomitant]
     Dosage: UNK UNK, QD
  5. FOLIC ACID [Concomitant]
     Dosage: 1 MG, QD
  6. LYRICA [Concomitant]
     Dosage: 25 MG, TID
  7. CRESTOR [Concomitant]
     Dosage: UNK UNK, QD
  8. NASONEX [Concomitant]
     Dosage: 50 A?G, QWK
  9. DILTIAZEM [Concomitant]
     Dosage: 300 MG, QD
  10. ZETIA [Concomitant]
     Dosage: 10 MG, QD
  11. PROLIA [Suspect]
     Indication: OSTEOPOROSIS POSTMENOPAUSAL
     Dosage: 60 MG, Q6MO
     Dates: start: 20111105, end: 20101106
  12. VICODIN [Concomitant]
     Dosage: UNK MG, BID
  13. HYDROCODONE BITARTRATE AND ACETAMINOPHEN [Concomitant]
     Dosage: UNK
  14. COUMADIN [Concomitant]
     Dosage: 4 MG, QD
  15. VICODIN [Concomitant]
     Dosage: UNK UNK, BID
     Dates: start: 20101201

REACTIONS (3)
  - GASTROOESOPHAGEAL REFLUX DISEASE [None]
  - ARTHRALGIA [None]
  - PAIN [None]
